FAERS Safety Report 12478511 (Version 1)
Quarter: 2016Q2

REPORT INFORMATION
  Report Type: Spontaneous
  Country: US (occurrence: US)
  Receive Date: 20160618
  Receipt Date: 20160618
  Transmission Date: 20160815
  Serious: No
  Sender: FDA-Public Use
  Company Number: US-ASTRAZENECA-2016SE55641

PATIENT
  Age: 38 Year
  Sex: Male
  Weight: 102.1 kg

DRUGS (5)
  1. SEROQUEL [Suspect]
     Active Substance: QUETIAPINE FUMARATE
     Indication: BIPOLAR DISORDER
     Route: 048
     Dates: start: 2005
  2. SEROQUEL [Suspect]
     Active Substance: QUETIAPINE FUMARATE
     Indication: BIPOLAR DISORDER
     Dosage: QUETIAPINE FUMARATE
     Route: 048
     Dates: start: 2005
  3. XANAX [Concomitant]
     Active Substance: ALPRAZOLAM
     Indication: ANXIETY
     Route: 048
     Dates: start: 2006
  4. LAMOTRIGINE. [Concomitant]
     Active Substance: LAMOTRIGINE
     Dosage: UNKNOWN
     Route: 048
  5. SEROQUEL [Suspect]
     Active Substance: QUETIAPINE FUMARATE
     Indication: BIPOLAR DISORDER
     Dosage: SEROQUEL XR
     Route: 048
     Dates: start: 2005

REACTIONS (17)
  - Weight decreased [Unknown]
  - Hypertension [Unknown]
  - Blood glucose increased [Unknown]
  - Tularaemia [Unknown]
  - Blood triglycerides increased [Unknown]
  - Gynaecomastia [Unknown]
  - Tardive dyskinesia [Unknown]
  - Food craving [Recovered/Resolved]
  - Decreased appetite [Unknown]
  - Weight increased [Unknown]
  - Sexual dysfunction [Unknown]
  - Blood cholesterol increased [Unknown]
  - Dizziness [Unknown]
  - Tachycardia [Unknown]
  - Insomnia [Unknown]
  - Mania [Unknown]
  - Breast pain [Unknown]

NARRATIVE: CASE EVENT DATE: 2005
